FAERS Safety Report 9834101 (Version 1)
Quarter: 2014Q1

REPORT INFORMATION
  Report Type: Spontaneous
  Country: US (occurrence: US)
  Receive Date: 20140122
  Receipt Date: 20140122
  Transmission Date: 20141002
  Serious: Yes (Hospitalization)
  Sender: FDA-Public Use
  Company Number: US-BAYER-2014-009607

PATIENT
  Age: 42 Year
  Sex: Female
  Weight: 120.2 kg

DRUGS (14)
  1. YAZ [Suspect]
     Dosage: UNK
  2. ALLERGY SHOTS [Concomitant]
     Dosage: UNK
  3. ADVIL [Concomitant]
     Dosage: UNK, AS NEEDED
  4. MYCOLOG-II [Concomitant]
     Dosage: UNK
  5. ANAPROX [Concomitant]
     Dosage: 550 MG, Q 12 PRN
  6. DRISDOL [Concomitant]
     Dosage: 1.25 MG, WEEKLY FOR 12 WEEKS
  7. DOXYCYCLINE [Concomitant]
     Dosage: 100 MG, BID
  8. ADVAIR [Concomitant]
     Dosage: 500/50 BID
  9. PREDNISONE [Concomitant]
     Dosage: 20 MG, UNK
  10. PROVENTIL [Concomitant]
     Dosage: 90 MCG, UNK
     Route: 045
  11. VESICARE [Concomitant]
     Dosage: 10 MG, UNK
  12. CLARITIN [Concomitant]
     Dosage: UNK
  13. VITAMIN D [Concomitant]
     Dosage: 50000 U
  14. PRILOSEC [Concomitant]
     Dosage: UNK

REACTIONS (2)
  - Pulmonary embolism [Recovered/Resolved]
  - Deep vein thrombosis [Recovered/Resolved]
